FAERS Safety Report 23643191 (Version 1)
Quarter: 2024Q1

REPORT INFORMATION
  Report Type: Report from Study
  Country: GB (occurrence: GB)
  Receive Date: 20240318
  Receipt Date: 20240318
  Transmission Date: 20240409
  Serious: Yes (Death, Other)
  Sender: FDA-Public Use
  Company Number: GB-PFIZER INC-PV202400035922

PATIENT
  Age: 58 Year

DRUGS (1)
  1. ELREXFIO [Suspect]
     Active Substance: ELRANATAMAB-BCMM
     Dosage: 8 CYCLES
     Dates: start: 202305

REACTIONS (5)
  - COVID-19 [Fatal]
  - Tumour lysis syndrome [Unknown]
  - Cytokine release syndrome [Unknown]
  - Acute kidney injury [Unknown]
  - Neoplasm progression [Unknown]
